FAERS Safety Report 15230113 (Version 1)
Quarter: 2018Q3

REPORT INFORMATION
  Report Type: Spontaneous
  Country: US (occurrence: US)
  Receive Date: 20180802
  Receipt Date: 20180802
  Transmission Date: 20181010
  Serious: Yes (Other)
  Sender: FDA-Public Use
  Company Number: US-ACCORD-065268

PATIENT
  Age: 58 Year
  Sex: Female
  Weight: 77.11 kg

DRUGS (13)
  1. XARELTO [Concomitant]
     Active Substance: RIVAROXABAN
  2. AMBIEN [Concomitant]
     Active Substance: ZOLPIDEM TARTRATE
     Dates: start: 201211
  3. DEXILANT [Concomitant]
     Active Substance: DEXLANSOPRAZOLE
  4. DOCUSATE SODIUM/SENNOSIDE A+B [Concomitant]
  5. ZOLOFT [Concomitant]
     Active Substance: SERTRALINE HYDROCHLORIDE
  6. ATENOLOL/ATENOLOL HYDROCHLORIDE [Concomitant]
  7. DOCUSATE [Concomitant]
     Active Substance: DOCUSATE
  8. PREDNISONE. [Concomitant]
     Active Substance: PREDNISONE
     Dates: start: 201211
  9. OXYCODONE HYDROCHLORIDE/PARACETAMOL [Concomitant]
  10. LETROZOLE. [Concomitant]
     Active Substance: LETROZOLE
  11. DOCETAXEL ACCORD [Suspect]
     Active Substance: DOCETAXEL
     Indication: BREAST CANCER
     Dosage: NUMBER OF CYCLES:  06
     Dates: start: 20121211, end: 20130402
  12. MORPHINE [Concomitant]
     Active Substance: MORPHINE
  13. ZOFRAN [Concomitant]
     Active Substance: ONDANSETRON HYDROCHLORIDE

REACTIONS (1)
  - Alopecia [Not Recovered/Not Resolved]

NARRATIVE: CASE EVENT DATE: 201212
